FAERS Safety Report 24440685 (Version 2)
Quarter: 2025Q3

REPORT INFORMATION
  Report Type: Report from Study
  Country: US (occurrence: US)
  Receive Date: 20241016
  Receipt Date: 20250809
  Transmission Date: 20251020
  Serious: Yes (Other)
  Sender: ALEXION PHARMACEUTICALS
  Company Number: US-AstraZeneca-CH-00717130A

PATIENT
  Sex: Male
  Weight: 122.45 kg

DRUGS (2)
  1. FASENRA [Suspect]
     Active Substance: BENRALIZUMAB
     Indication: Asthma
     Dosage: 30 MILLIGRAM, Q8W
  2. JAKAFI [Suspect]
     Active Substance: RUXOLITINIB
     Indication: Asthma
     Dosage: 15 MILLIGRAM, BID
     Route: 065

REACTIONS (3)
  - Myelofibrosis [Unknown]
  - Blood disorder [Unknown]
  - Platelet count decreased [Unknown]
